FAERS Safety Report 9240911 (Version 1)
Quarter: 2013Q2

REPORT INFORMATION
  Report Type: Spontaneous
  Country: US (occurrence: US)
  Receive Date: 20130418
  Receipt Date: 20130418
  Transmission Date: 20140414
  Serious: No
  Sender: FDA-Public Use
  Company Number: US-009507513-1304USA009110

PATIENT
  Sex: 0

DRUGS (1)
  1. IMPLANON [Suspect]
     Dosage: 1 DF, UNK
     Dates: end: 2013

REACTIONS (3)
  - Implant site fibrosis [Unknown]
  - Medical device complication [Unknown]
  - Device difficult to use [Unknown]
